FAERS Safety Report 11669372 (Version 1)
Quarter: 2015Q4

REPORT INFORMATION
  Report Type: Spontaneous
  Country: US (occurrence: US)
  Receive Date: 20151027
  Receipt Date: 20151027
  Transmission Date: 20160304
  Serious: Yes (Hospitalization)
  Sender: FDA-Public Use
  Company Number: US-BAUSCH-BL-2015-024112

PATIENT
  Age: 45 Year
  Sex: Male

DRUGS (5)
  1. XIFAXAN [Suspect]
     Active Substance: RIFAXIMIN
     Indication: HEPATIC ENCEPHALOPATHY
     Route: 048
     Dates: start: 201506
  2. SPIRONOLACTONE 100 MG [Concomitant]
     Indication: ASCITES
     Route: 048
  3. FUROSEMIDE 40 MG [Concomitant]
     Active Substance: FUROSEMIDE
     Indication: ASCITES
     Route: 048
  4. OMEPRAZOLE 40 MG [Concomitant]
     Active Substance: OMEPRAZOLE
     Indication: DYSPHAGIA
     Route: 048
  5. NADOLOL 20 MG [Concomitant]
     Indication: HYPERTENSION
     Route: 048

REACTIONS (2)
  - Blood pressure increased [Unknown]
  - Ammonia increased [Recovered/Resolved]

NARRATIVE: CASE EVENT DATE: 201510
